FAERS Safety Report 25655189 (Version 1)
Quarter: 2025Q3

REPORT INFORMATION
  Report Type: Spontaneous
  Country: US (occurrence: None)
  Receive Date: 20250806
  Receipt Date: 20250806
  Transmission Date: 20251021
  Serious: No
  Sender: FDA-CTU
  Company Number: None

PATIENT
  Age: 25 Year
  Sex: Female

DRUGS (1)
  1. KETOCONAZOLE [Suspect]
     Active Substance: KETOCONAZOLE
     Route: 061
     Dates: start: 20250801, end: 20250802

REACTIONS (1)
  - Reaction to excipient [None]

NARRATIVE: CASE EVENT DATE: 20250802
